FAERS Safety Report 16940216 (Version 2)
Quarter: 2019Q4

REPORT INFORMATION
  Report Type: Spontaneous
  Country: BE (occurrence: BE)
  Receive Date: 20191021
  Receipt Date: 20191029
  Transmission Date: 20200122
  Serious: Yes (Other)
  Sender: FDA-Public Use
  Company Number: BE-BAUSCH-BL-2019-058470

PATIENT
  Age: 42 Year
  Sex: Male
  Weight: 89 kg

DRUGS (18)
  1. HYDROCORTISONE. [Interacting]
     Active Substance: HYDROCORTISONE
     Dosage: SLIGHTLY REDUCED TO 20MG DAILY
     Route: 065
  2. FLUDROCORTISONE [Concomitant]
     Active Substance: FLUDROCORTISONE
     Indication: PRIMARY ADRENAL INSUFFICIENCY
  3. FLUDROCORTISONE [Concomitant]
     Active Substance: FLUDROCORTISONE
  4. TEBRAZID [Concomitant]
     Active Substance: PYRAZINAMIDE
     Indication: TUBERCULOSIS
  5. RIFAMPICINE [Interacting]
     Active Substance: RIFAMPIN
     Indication: TUBERCULOSIS
     Route: 065
  6. ESOMEPRAZOLE. [Concomitant]
     Active Substance: ESOMEPRAZOLE MAGNESIUM
     Indication: GASTROOESOPHAGEAL REFLUX DISEASE
  7. PYRIDOXINE [Concomitant]
     Active Substance: PYRIDOXINE
     Indication: EVIDENCE BASED TREATMENT
  8. HYDROCORTISONE. [Interacting]
     Active Substance: HYDROCORTISONE
     Dosage: INCREASED DOSE TO AVERT ADDISON CRISIS
     Route: 065
  9. TEBRAZID [Concomitant]
     Active Substance: PYRAZINAMIDE
     Indication: EVIDENCE BASED TREATMENT
  10. MYAMBUTOL [Concomitant]
     Active Substance: ETHAMBUTOL HYDROCHLORIDE
     Indication: TUBERCULOSIS
  11. PYRIDOXINE [Concomitant]
     Active Substance: PYRIDOXINE
     Indication: TUBERCULOSIS
     Dosage: 250 MG/WEEK
  12. NICOTIBINE [Concomitant]
     Active Substance: ISONIAZID
     Indication: EVIDENCE BASED TREATMENT
  13. HYDROCORTISONE. [Suspect]
     Active Substance: HYDROCORTISONE
     Indication: PRIMARY ADRENAL INSUFFICIENCY
     Dosage: 15 MG PLUS 5 MG/DAY
     Route: 065
  14. FLUDROCORTISONE [Concomitant]
     Active Substance: FLUDROCORTISONE
     Dosage: 75 TO 50 MICROGRAMS DAILY
  15. HYDROCORTISONE. [Interacting]
     Active Substance: HYDROCORTISONE
     Dosage: SLIGHTLY REDUCED TO 10MG DAILY
     Route: 065
  16. RIFAMPICINE [Interacting]
     Active Substance: RIFAMPIN
     Indication: EVIDENCE BASED TREATMENT
  17. NICOTIBINE [Concomitant]
     Active Substance: ISONIAZID
     Indication: TUBERCULOSIS
  18. MYAMBUTOL [Concomitant]
     Active Substance: ETHAMBUTOL HYDROCHLORIDE
     Indication: EVIDENCE BASED TREATMENT

REACTIONS (2)
  - Drug interaction [Unknown]
  - Adrenal insufficiency [Unknown]
